FAERS Safety Report 21310975 (Version 1)
Quarter: 2022Q3

REPORT INFORMATION
  Report Type: Spontaneous
  Country: US (occurrence: None)
  Receive Date: 20220909
  Receipt Date: 20220909
  Transmission Date: 20221027
  Serious: No
  Sender: FDA-Public Use
  Company Number: US-ARIS GLOBAL-202112-2292

PATIENT
  Sex: Female

DRUGS (7)
  1. OXERVATE [Suspect]
     Active Substance: CENEGERMIN-BKBJ
     Indication: Neurotrophic keratopathy
     Route: 047
     Dates: start: 20211208
  2. LUTEIN-ZEAXANTHIN [Concomitant]
  3. PROBIOTIC-10 10B [Concomitant]
  4. OMEGA-3 + D [Concomitant]
     Dosage: 150-500 MG
  5. PROGESTERONE [Concomitant]
     Active Substance: PROGESTERONE
  6. MOXIFLOXACIN [Concomitant]
     Active Substance: MOXIFLOXACIN
  7. VALTREX [Concomitant]
     Active Substance: VALACYCLOVIR HYDROCHLORIDE

REACTIONS (3)
  - Eye pain [Unknown]
  - Migraine [Unknown]
  - Corneal abrasion [Unknown]
